FAERS Safety Report 9734451 (Version 1)
Quarter: 2013Q4

REPORT INFORMATION
  Report Type: Spontaneous
  Country: US (occurrence: US)
  Receive Date: 20131206
  Receipt Date: 20131206
  Transmission Date: 20140711
  Serious: Yes (Hospitalization)
  Sender: FDA-Public Use
  Company Number: US-SUN PHARMACEUTICAL INDUSTRIES LTD-2013SUN05109

PATIENT
  Age: 59 Year
  Sex: Female

DRUGS (4)
  1. DOCETAXEL INJECTION [Suspect]
     Indication: METASTATIC UTERINE CANCER
     Route: 065
  2. DOCETAXEL INJECTION [Suspect]
     Route: 065
  3. CARBOPLATIN [Suspect]
     Indication: METASTATIC UTERINE CANCER
     Route: 065
  4. CARBOPLATIN [Suspect]
     Route: 065

REACTIONS (1)
  - Tumour lysis syndrome [Recovered/Resolved]
